FAERS Safety Report 4395008-9 (Version None)
Quarter: 2004Q3

REPORT INFORMATION
  Report Type: 
  Country: None (occurrence: None)
  Receive Date: 20040712
  Receipt Date: 20040522
  Transmission Date: 20050211
  Serious: Yes (Other)
  Sender: FDA-Public Use
  Company Number: PHFR2004GB02211

PATIENT
  Age: 21 Year
  Sex: Female

DRUGS (7)
  1. CLOZARIL [Suspect]
     Indication: SCHIZOPHRENIA
     Dosage: 100-125MG/DAY
     Route: 048
     Dates: start: 20040509
  2. CLOZARIL [Suspect]
     Dosage: 100MG MANE + 125 MG NOCTE
     Route: 048
     Dates: start: 20040522
  3. CLOZARIL [Suspect]
     Dosage: 100MG MANE + 100MG NOCTE
     Dates: start: 20040523
  4. CLOZARIL [Suspect]
     Dosage: 100 MG, BID
     Route: 048
     Dates: start: 20040521
  5. CLOZARIL [Suspect]
     Dosage: 225MG/DAY
  6. QUETIAPINE [Concomitant]
     Indication: SCHIZOPHRENIA
     Dosage: 800MG/DAY
     Route: 048
     Dates: start: 20031201
  7. QUETIAPINE [Concomitant]
     Dosage: 400 MG/DAY
     Route: 048
     Dates: end: 20040530

REACTIONS (6)
  - BLOOD PRESSURE DIASTOLIC INCREASED [None]
  - DIZZINESS [None]
  - HEADACHE [None]
  - NAUSEA [None]
  - ORTHOSTATIC HYPOTENSION [None]
  - VASODILATATION [None]
